FAERS Safety Report 9098309 (Version 1)
Quarter: 2013Q1

REPORT INFORMATION
  Report Type: Report from Study
  Country: GB (occurrence: GB)
  Receive Date: 20130213
  Receipt Date: 20130213
  Transmission Date: 20140127
  Serious: Yes (Hospitalization)
  Sender: FDA-Public Use
  Company Number: GB-ROCHE-1119482

PATIENT
  Age: 56 Year
  Sex: Female
  Weight: 55 kg

DRUGS (17)
  1. RITUXIMAB [Suspect]
     Indication: PRODUCT USED FOR UNKNOWN INDICATION
     Dosage: MOST RECENT DOSE PRIOR TO SAE 13/DEC/2011
     Route: 065
     Dates: start: 20110228
  2. OMEPRAZOLE [Concomitant]
     Dosage: 2 AT NIGHT
     Route: 065
  3. DOXYCYCLINE [Concomitant]
  4. LEVOTHYROXINE SODIUM [Concomitant]
     Dosage: 1 EACH MORNING
     Route: 065
  5. LEVOTHYROXINE SODIUM [Concomitant]
     Dosage: 1 EACH MORNING
     Route: 065
  6. ALENDRONIC ACID [Concomitant]
     Dosage: 1 WEEKLY ON THURSDAY
     Route: 065
  7. PHYLLOCONTIN CONTINUS [Concomitant]
     Dosage: 1 MORNING + 1 NIGHT
     Route: 065
  8. NAPROXEN [Concomitant]
     Route: 065
  9. PREDNISOLONE [Concomitant]
     Dosage: 3 EACH MORNING LONGTERM
     Route: 065
  10. CALCICHEW D3 FORTE [Concomitant]
     Dosage: 1 AT NIGHT
     Route: 065
  11. TRAMADOL HYDROCHLORIDE [Concomitant]
     Dosage: 1 AT NIGHT AND MORNING AS REQUIRED
     Route: 065
  12. SERETIDE [Concomitant]
     Dosage: 1 DOSE TWICE A DAY
     Route: 065
  13. SALBUTAMOL [Concomitant]
     Dosage: 2 PUFFS FOUR TIMES A DAY WHEN REQUIRED
     Route: 065
  14. LACTULOSE [Concomitant]
     Dosage: 3.1-3.7G/5ML
     Route: 048
  15. CARBOCISTEINE [Concomitant]
     Dosage: 2 TWICE TO THREE TIMES A DAY
     Route: 065
  16. TIOTROPIUM BROMIDE [Concomitant]
     Dosage: 1 DAILY
     Route: 065
  17. LEVOFLOXACIN [Concomitant]
     Route: 065

REACTIONS (2)
  - Infective exacerbation of chronic obstructive airways disease [Recovered/Resolved]
  - Respiratory failure [Recovered/Resolved]
